FAERS Safety Report 15247706 (Version 1)
Quarter: 2018Q3

REPORT INFORMATION
  Report Type: Spontaneous
  Country: US (occurrence: US)
  Receive Date: 20180807
  Receipt Date: 20180807
  Transmission Date: 20181010
  Serious: Yes (Hospitalization, Other)
  Sender: FDA-Public Use
  Company Number: US-ASTELLAS-2018US034560

PATIENT
  Age: 28 Year
  Sex: Male

DRUGS (1)
  1. TACROLIMUS. [Suspect]
     Active Substance: TACROLIMUS
     Indication: STEM CELL TRANSPLANT
     Dosage: 0.5 MG, ONCE DAILY
     Route: 065

REACTIONS (9)
  - Febrile neutropenia [Recovered/Resolved]
  - Acute myeloid leukaemia recurrent [Unknown]
  - Moraxella infection [Unknown]
  - Parotitis [Unknown]
  - Sinusitis [Unknown]
  - Bacterial infection [Unknown]
  - Staphylococcal infection [Unknown]
  - Pancytopenia [Unknown]
  - Product use in unapproved indication [Unknown]
